FAERS Safety Report 8172607-X (Version None)
Quarter: 2012Q1

REPORT INFORMATION
  Report Type: 
  Country: None (occurrence: None)
  Receive Date: 20120229
  Receipt Date: 20120222
  Transmission Date: 20120608
  Serious: No
  Sender: FDA-Public Use
  Company Number: US-PFIZER INC-2012048538

PATIENT

DRUGS (10)
  1. BUPROPION [Concomitant]
     Dosage: UNK
  2. COLCRYS [Concomitant]
     Dosage: UNK
  3. VENTOLIN HFA [Concomitant]
     Dosage: UNK
  4. ALLOPURINOL [Concomitant]
     Dosage: UNK
  5. ZESTORETIC [Concomitant]
     Dosage: UNK
  6. NEURONTIN [Suspect]
     Dosage: STRENGTH 300 MG, 3AM 2PM
  7. ESTRADIOL [Concomitant]
     Dosage: UNK
  8. PRILOSEC [Concomitant]
     Dosage: UNK
  9. ADVAIR DISKUS 100/50 [Concomitant]
     Dosage: UNK
  10. ZOCOR [Concomitant]
     Dosage: UNK

REACTIONS (1)
  - CARPAL TUNNEL SYNDROME [None]
